FAERS Safety Report 10207777 (Version 1)
Quarter: 2014Q2

REPORT INFORMATION
  Report Type: Spontaneous
  Country: US (occurrence: US)
  Receive Date: 20140530
  Receipt Date: 20140530
  Transmission Date: 20141212
  Serious: No
  Sender: FDA-Public Use
  Company Number: US-GLAXOSMITHKLINE-A1058710A

PATIENT
  Sex: Female

DRUGS (7)
  1. VENTOLIN HFA [Suspect]
     Indication: CHRONIC OBSTRUCTIVE PULMONARY DISEASE
     Dosage: 2PUFF FOUR TIMES PER DAY
     Route: 055
  2. XELODA [Suspect]
     Indication: PRODUCT USED FOR UNKNOWN INDICATION
     Route: 065
  3. AMLODIPINE [Concomitant]
  4. IPRATROPIUM BROMIDE + SALBUTAMOL SULPHATE [Concomitant]
  5. VITAMIN B [Concomitant]
  6. MUCINEX DM [Concomitant]
  7. OXYGEN [Concomitant]

REACTIONS (8)
  - Cough [Unknown]
  - Laceration [Unknown]
  - Burning sensation [Unknown]
  - Erythema [Unknown]
  - Skin discolouration [Unknown]
  - Pain [Unknown]
  - Chronic obstructive pulmonary disease [Unknown]
  - Emphysema [Unknown]
